FAERS Safety Report 20752559 (Version 1)
Quarter: 2022Q2

REPORT INFORMATION
  Report Type: Spontaneous
  Country: US (occurrence: None)
  Receive Date: 20220426
  Receipt Date: 20220426
  Transmission Date: 20220721
  Serious: No
  Sender: FDA-Public Use
  Company Number: US-ROCHE-2852716

PATIENT
  Sex: Male

DRUGS (8)
  1. ESBRIET [Suspect]
     Active Substance: PIRFENIDONE
     Indication: Idiopathic pulmonary fibrosis
     Dosage: WITH MEALS
     Route: 048
  2. ASPIRIN [Concomitant]
     Active Substance: ASPIRIN
  3. JANUVIA [Concomitant]
     Active Substance: SITAGLIPTIN PHOSPHATE
  4. METOPROLOL [Concomitant]
     Active Substance: METOPROLOL
  5. MIDODRINE HYDROCHLORIDE [Concomitant]
     Active Substance: MIDODRINE HYDROCHLORIDE
  6. ROSUVASTATIN [Concomitant]
     Active Substance: ROSUVASTATIN
  7. SINGULAIR [Concomitant]
     Active Substance: MONTELUKAST SODIUM
  8. WARFARIN SODIUM [Concomitant]
     Active Substance: WARFARIN SODIUM

REACTIONS (1)
  - Weight decreased [Recovered/Resolved]
